FAERS Safety Report 13861276 (Version 5)
Quarter: 2020Q3

REPORT INFORMATION
  Report Type: Report from Study
  Country: PL (occurrence: PL)
  Receive Date: 20170811
  Receipt Date: 20181105
  Transmission Date: 20201104
  Serious: Yes (Hospitalization)
  Sender: FDA-Public Use
  Company Number: PL-JNJFOC-20170802839

PATIENT
  Age: 41 Year
  Sex: Male
  Weight: 106 kg

DRUGS (3)
  1. POLOPIRYNA [Suspect]
     Active Substance: ASPIRIN
     Indication: OROPHARYNGEAL PAIN
     Route: 048
     Dates: start: 20170721, end: 20170722
  2. GUSELKUMAB [Suspect]
     Active Substance: GUSELKUMAB
     Indication: PSORIASIS
     Route: 058
     Dates: start: 20170623, end: 20170721
  3. GUSELKUMAB [Suspect]
     Active Substance: GUSELKUMAB
     Route: 058

REACTIONS (1)
  - Drug eruption [Recovered/Resolved]

NARRATIVE: CASE EVENT DATE: 20170728
